FAERS Safety Report 7290737-1 (Version None)
Quarter: 2011Q1

REPORT INFORMATION
  Report Type: 
  Country: None (occurrence: None)
  Receive Date: 20110214
  Receipt Date: 20110203
  Transmission Date: 20110831
  Serious: Yes (Other)
  Sender: FDA-Public Use
  Company Number: CA-ROCHE-748866

PATIENT
  Sex: Male

DRUGS (6)
  1. BEVACIZUMAB [Suspect]
     Indication: GLIOBLASTOMA
     Dosage: INFUSION CANCELLED
     Route: 042
     Dates: start: 20100902, end: 20110106
  2. BEVACIZUMAB [Suspect]
     Route: 042
  3. DECADRON [Concomitant]
  4. DILANTIN [Concomitant]
  5. ZANTAC [Concomitant]
  6. VEPESID [Concomitant]

REACTIONS (7)
  - AMNESIA [None]
  - EYE INFECTION [None]
  - FATIGUE [None]
  - OEDEMA [None]
  - NASOPHARYNGITIS [None]
  - MUSCULOSKELETAL CHEST PAIN [None]
  - PYREXIA [None]
